FAERS Safety Report 8812721 (Version 2)
Quarter: 2012Q4

REPORT INFORMATION
  Report Type: 
  Country: JP (occurrence: JP)
  Receive Date: 20120927
  Receipt Date: 20121018
  Transmission Date: 20130627
  Serious: Yes (Hospitalization, Other)
  Sender: FDA-Public Use
  Company Number: JP-ABBOTT-12P-087-0986865-00

PATIENT
  Age: 65 Year
  Sex: Male

DRUGS (7)
  1. LEUPLIN [Suspect]
     Indication: PROSTATE CANCER
     Route: 058
     Dates: start: 20081208
  2. LEUPLIN [Suspect]
     Route: 058
     Dates: start: 20110330
  3. LEUPLIN [Suspect]
     Route: 058
     Dates: start: 20120907
  4. INEXIUM [Concomitant]
     Indication: GASTRIC ULCER
     Route: 048
     Dates: start: 20120217, end: 20120514
  5. BAKTAR [Concomitant]
     Indication: INFECTION PROPHYLAXIS
     Route: 048
     Dates: start: 20120217
  6. OMEPRAL [Concomitant]
     Indication: PROPHYLAXIS AGAINST GASTROINTESTINAL ULCER
     Route: 048
     Dates: start: 20120515
  7. MEVALOTIN [Concomitant]
     Indication: DYSLIPIDAEMIA
     Route: 048
     Dates: start: 20120717

REACTIONS (2)
  - Microscopic polyangiitis [Recovered/Resolved]
  - Interstitial lung disease [Unknown]
